FAERS Safety Report 7399621-6 (Version None)
Quarter: 2011Q2

REPORT INFORMATION
  Report Type: 
  Country: None (occurrence: None)
  Receive Date: 20110407
  Receipt Date: 20110209
  Transmission Date: 20111010
  Serious: Yes (Other)
  Sender: FDA-Public Use
  Company Number: US-BAYER-201021758NA

PATIENT
  Sex: Female
  Weight: 63.636 kg

DRUGS (16)
  1. AMOXICILLIN [Concomitant]
     Dates: start: 20070101, end: 20100615
  2. ROXICET [Concomitant]
     Dates: end: 20090430
  3. CYMBALTA [Concomitant]
     Dates: end: 20090430
  4. YAZ [Suspect]
     Indication: CONTRACEPTION
     Dosage: AS USED DOSE: UNK
     Route: 048
     Dates: start: 20030101, end: 20090415
  5. TRAZODONE [Concomitant]
     Indication: INSOMNIA
     Dates: start: 20080101, end: 20090101
  6. UNCODEABLE ^UNCLASSIFIABLE^ [Concomitant]
     Indication: PAIN
     Dates: start: 20090101
  7. CARISOPRODOL [Concomitant]
     Indication: PAIN
     Dates: start: 20090501
  8. SOMA [Concomitant]
     Indication: FIBROMYALGIA
     Dates: start: 20050101, end: 20100615
  9. PHENERGAN HCL [Concomitant]
     Indication: VOMITING
     Dates: start: 20070101
  10. OXYMORPHONE HYDROCHLORIDE [Concomitant]
     Dates: start: 20090202
  11. REGLAN [Concomitant]
     Indication: VOMITING
     Dates: start: 20070101, end: 20090430
  12. CEPHALEXIN [Concomitant]
     Dates: start: 20090212
  13. OXYCONTIN [Concomitant]
     Indication: PAIN
     Dates: start: 20090415, end: 20090430
  14. YASMIN [Suspect]
     Indication: CONTRACEPTION
     Dosage: AS USED DOSE: UNK
     Route: 048
     Dates: start: 20031216, end: 20090415
  15. MORPHINE [Concomitant]
     Dates: start: 20090219
  16. XANAX [Concomitant]
     Dates: end: 20090430

REACTIONS (13)
  - MIGRAINE WITH AURA [None]
  - PARAESTHESIA [None]
  - HYPOAESTHESIA FACIAL [None]
  - NAUSEA [None]
  - CEREBROVASCULAR ACCIDENT [None]
  - DYSARTHRIA [None]
  - AMNESIA [None]
  - HYPOAESTHESIA [None]
  - MIGRAINE [None]
  - VOMITING [None]
  - MUSCULAR WEAKNESS [None]
  - VIITH NERVE PARALYSIS [None]
  - GAIT DISTURBANCE [None]
